FAERS Safety Report 15768161 (Version 2)
Quarter: 2019Q2

REPORT INFORMATION
  Report Type: Spontaneous
  Country: US (occurrence: US)
  Receive Date: 20181227
  Receipt Date: 20190416
  Transmission Date: 20190711
  Serious: Yes (Hospitalization, Other)
  Sender: FDA-Public Use
  Company Number: US-PFIZER INC-2018528192

PATIENT
  Age: 47 Year
  Sex: Female
  Weight: 99.79 kg

DRUGS (6)
  1. GABAPENTIN. [Suspect]
     Active Substance: GABAPENTIN
     Indication: NEURALGIA
  2. GABAPENTIN. [Suspect]
     Active Substance: GABAPENTIN
     Indication: PAIN IN EXTREMITY
     Dosage: 900 MG, 3X/DAY [1800 MG A DAY BUT AT ONE POINT WAS TAKING 2700 MG A DAY: WITH 900 MG 3 TIMES A DAY]
     Dates: start: 2015, end: 20181119
  3. GABAPENTIN. [Suspect]
     Active Substance: GABAPENTIN
     Indication: SCAR
  4. PERCOCET [Concomitant]
     Active Substance: ACETAMINOPHEN\OXYCODONE HYDROCHLORIDE
     Indication: PAIN
     Dosage: UNK UNK, AS NEEDED [10/325 1/2 TABLET AS NEEDED FOR SEVERE PAIN]
  5. GABAPENTIN. [Suspect]
     Active Substance: GABAPENTIN
     Indication: NEUROPATHY PERIPHERAL
     Dosage: 1800 MG, DAILY [1800 MG A DAY BUT AT ONE POINT WAS TAKING 2700 MG A DAY: WITH 900 MG 3 TIMES A DAY]
     Dates: start: 2015, end: 20181119
  6. GABAPENTIN. [Suspect]
     Active Substance: GABAPENTIN
     Indication: NERVE INJURY

REACTIONS (2)
  - Drug ineffective [Unknown]
  - Suicidal ideation [Unknown]
